FAERS Safety Report 13975024 (Version 1)
Quarter: 2017Q3

REPORT INFORMATION
  Report Type: Spontaneous
  Country: PY (occurrence: PY)
  Receive Date: 20170915
  Receipt Date: 20170915
  Transmission Date: 20171128
  Serious: Yes (Other)
  Sender: FDA-Public Use
  Company Number: PY-BRISTOL-MYERS SQUIBB COMPANY-BMS-2017-080845

PATIENT
  Sex: Male

DRUGS (1)
  1. SPRYCEL [Suspect]
     Active Substance: DASATINIB
     Indication: CHRONIC MYELOID LEUKAEMIA
     Dosage: 100 MG, UNK
     Route: 065

REACTIONS (1)
  - Blood disorder [Unknown]
